FAERS Safety Report 18770893 (Version 1)
Quarter: 2021Q1

REPORT INFORMATION
  Report Type: Spontaneous
  Country: US (occurrence: US)
  Receive Date: 20210121
  Receipt Date: 20210121
  Transmission Date: 20210419
  Serious: No
  Sender: FDA-Public Use
  Company Number: US-ELI_LILLY_AND_COMPANY-US202101009000

PATIENT
  Age: 46 Year
  Sex: Male

DRUGS (1)
  1. REYVOW [Suspect]
     Active Substance: LASMIDITAN
     Indication: MIGRAINE
     Dosage: 100 MG, OTHER
     Route: 065
     Dates: start: 20201207, end: 20201207

REACTIONS (1)
  - Autoscopy [Unknown]

NARRATIVE: CASE EVENT DATE: 20201207
